FAERS Safety Report 18564736 (Version 1)
Quarter: 2020Q4

REPORT INFORMATION
  Report Type: Spontaneous
  Country: CA (occurrence: CA)
  Receive Date: 20201201
  Receipt Date: 20201201
  Transmission Date: 20210114
  Serious: Yes (Hospitalization, Other)
  Sender: FDA-Public Use
  Company Number: CA-REGENERON PHARMACEUTICALS, INC.-2020-91344

PATIENT

DRUGS (2)
  1. CLOPIDOGREL [Concomitant]
     Active Substance: CLOPIDOGREL BISULFATE
     Indication: ANTIPLATELET THERAPY
  2. EYLEA [Suspect]
     Active Substance: AFLIBERCEPT
     Indication: AGE-RELATED MACULAR DEGENERATION
     Dosage: 1 DF, ONCE (LAST INJECTION, 7 WEEKS PRIOR TO EVENTS, TOTAL NUMBER OF INJECTIONS UNKNOWN)
     Route: 031

REACTIONS (3)
  - Alpha haemolytic streptococcal infection [Recovered/Resolved]
  - Endophthalmitis [Recovered/Resolved]
  - Blindness unilateral [Recovered/Resolved]
